FAERS Safety Report 7860090-0 (Version None)
Quarter: 2011Q4

REPORT INFORMATION
  Report Type: 
  Country: None (occurrence: None)
  Receive Date: 20111026
  Receipt Date: 20111012
  Transmission Date: 20120403
  Serious: Yes (Hospitalization)
  Sender: FDA-Public Use
  Company Number: TPA2011A06697

PATIENT
  Sex: Male

DRUGS (2)
  1. COLCRYS (COLCHICINE) [Suspect]
     Indication: GOUT
  2. ULORIC [Suspect]
     Indication: GOUT

REACTIONS (2)
  - SWOLLEN TONGUE [None]
  - ANAPHYLACTIC REACTION [None]
